FAERS Safety Report 24727418 (Version 4)
Quarter: 2025Q2

REPORT INFORMATION
  Report Type: Spontaneous
  Country: US (occurrence: US)
  Receive Date: 20241212
  Receipt Date: 20250523
  Transmission Date: 20250717
  Serious: Yes (Other)
  Sender: ITALFARMACO SPA
  Company Number: US-ITALFARMACO SPA-2166989

PATIENT
  Age: 27 Year
  Sex: Male
  Weight: 43.09 kg

DRUGS (21)
  1. DUVYZAT [Suspect]
     Active Substance: GIVINOSTAT
     Indication: Duchenne muscular dystrophy
     Dates: start: 20241108
  2. ANDROGEL [Concomitant]
     Active Substance: TESTOSTERONE
  3. LACTASE [Concomitant]
     Active Substance: LACTASE
  4. VILTEPSO [Concomitant]
     Active Substance: VILTOLARSEN
  5. SPIRONOLACTONE [Concomitant]
     Active Substance: SPIRONOLACTONE
  6. PEG 3350 [Concomitant]
     Active Substance: POLYETHYLENE GLYCOL 3350
  7. MOMETASONE [Concomitant]
     Active Substance: MOMETASONE
  8. MIRTAZAPINE [Concomitant]
     Active Substance: MIRTAZAPINE
  9. METFORMIN [Concomitant]
     Active Substance: METFORMIN HYDROCHLORIDE
  10. MELATONIN [Concomitant]
     Active Substance: MELATONIN
  11. LORAZEPAM [Concomitant]
     Active Substance: LORAZEPAM
  12. KETOCONAZOLE [Concomitant]
     Active Substance: KETOCONAZOLE
  13. IBUPROFEN [Concomitant]
     Active Substance: IBUPROFEN
  14. GLUTAMINE [Concomitant]
     Active Substance: GLUTAMINE
  15. FAMOTIDINE [Concomitant]
     Active Substance: FAMOTIDINE
  16. EPINEPHRINE [Concomitant]
     Active Substance: EPINEPHRINE
  17. ENTRESTO [Concomitant]
     Active Substance: SACUBITRIL\VALSARTAN
  18. EMFLAZA [Concomitant]
     Active Substance: DEFLAZACORT
  19. CARVEDILOL [Concomitant]
     Active Substance: CARVEDILOL
  20. CALCIUM CITRATE\CHOLECALCIFEROL [Concomitant]
     Active Substance: CALCIUM CITRATE\CHOLECALCIFEROL
  21. CETIRIZINE [Concomitant]
     Active Substance: CETIRIZINE HYDROCHLORIDE

REACTIONS (12)
  - Thrombocytopenia [Not Recovered/Not Resolved]
  - Arthralgia [Recovering/Resolving]
  - Oedema peripheral [Recovering/Resolving]
  - Increased tendency to bruise [Unknown]
  - Abdominal discomfort [Unknown]
  - Diarrhoea [Unknown]
  - Gastrointestinal disorder [Unknown]
  - Peripheral swelling [Unknown]
  - Pain in extremity [Unknown]
  - Myalgia [Recovering/Resolving]
  - Haematochezia [Not Recovered/Not Resolved]
  - Hypertriglyceridaemia [Not Recovered/Not Resolved]

NARRATIVE: CASE EVENT DATE: 20241127
